FAERS Safety Report 12201763 (Version 1)
Quarter: 2016Q1

REPORT INFORMATION
  Report Type: Spontaneous
  Country: US (occurrence: US)
  Receive Date: 20160322
  Receipt Date: 20160322
  Transmission Date: 20160526
  Serious: No
  Sender: FDA-Public Use
  Company Number: US-SA-2016SA032998

PATIENT
  Age: 78 Year
  Sex: Male

DRUGS (1)
  1. TRIAMCINOLONE ACETONIDE. [Suspect]
     Active Substance: TRIAMCINOLONE ACETONIDE
     Indication: RHINORRHOEA
     Dosage: FORM :SPRAY FREQUENCY :TWICE A DAY, FOR ~2X/WK
     Route: 065

REACTIONS (2)
  - Extra dose administered [Unknown]
  - Therapeutic response unexpected [Unknown]
